FAERS Safety Report 9519638 (Version 2)
Quarter: 2013Q3

REPORT INFORMATION
  Report Type: Report from Study
  Country: US (occurrence: US)
  Receive Date: 20130912
  Receipt Date: 20130917
  Transmission Date: 20140515
  Serious: Yes (Hospitalization)
  Sender: FDA-Public Use
  Company Number: US-ACTELION-A-NJ2013-88385

PATIENT
  Age: 52 Year
  Sex: Male

DRUGS (3)
  1. VENTAVIS [Suspect]
     Indication: PULMONARY ARTERIAL HYPERTENSION
     Dosage: 6 X DAY
     Route: 055
  2. ADCIRCA [Concomitant]
  3. LETAIRIS [Concomitant]

REACTIONS (4)
  - Sepsis [Recovering/Resolving]
  - Bacterial infection [Recovering/Resolving]
  - Arthralgia [Recovering/Resolving]
  - Myocardial infarction [Recovering/Resolving]
